FAERS Safety Report 5105239-8 (Version None)
Quarter: 2006Q3

REPORT INFORMATION
  Report Type: 
  Country: None (occurrence: None)
  Receive Date: 20060911
  Receipt Date: 20060822
  Transmission Date: 20061208
  Serious: Yes (Other)
  Sender: FDA-Public Use
  Company Number: US200606005051

PATIENT
  Age: 46 Year
  Sex: Male

DRUGS (4)
  1. CYMBALTA [Suspect]
     Indication: DIABETIC NEUROPATHY
     Dosage: SEE IMAGE
     Dates: start: 20060323, end: 20060329
  2. CYMBALTA [Suspect]
     Indication: DIABETIC NEUROPATHY
     Dosage: SEE IMAGE
     Dates: start: 20060330
  3. EFFEXOR [Concomitant]
  4. VICODIN ES [Concomitant]

REACTIONS (9)
  - ASTHENIA [None]
  - BALANCE DISORDER [None]
  - DIZZINESS [None]
  - FALL [None]
  - LOWER LIMB FRACTURE [None]
  - MOBILITY DECREASED [None]
  - MOVEMENT DISORDER [None]
  - MUSCLE CONTRACTURE [None]
  - WHEELCHAIR USER [None]
